FAERS Safety Report 14213702 (Version 5)
Quarter: 2018Q1

REPORT INFORMATION
  Report Type: Spontaneous
  Country: ES (occurrence: ES)
  Receive Date: 20171122
  Receipt Date: 20180212
  Transmission Date: 20180508
  Serious: Yes (Other)
  Sender: FDA-Public Use
  Company Number: ES-009507513-1711ESP006456

PATIENT
  Age: 66 Year
  Sex: Male

DRUGS (3)
  1. TEMOZOLOMIDE. [Suspect]
     Active Substance: TEMOZOLOMIDE
     Indication: PROLACTIN-PRODUCING PITUITARY TUMOUR
     Dosage: 200 MG/M2, FOR 5 DAYS EVERY 28 DAYS, FOR 24 CYCLES
     Route: 048
  2. BROMOCRIPTINE [Concomitant]
     Active Substance: BROMOCRIPTINE
     Indication: PITUITARY TUMOUR BENIGN
     Dosage: 15 MG, QD
     Route: 065
  3. TEMOZOLOMIDE. [Suspect]
     Active Substance: TEMOZOLOMIDE
     Indication: METASTASIS
     Dosage: 150 MG/M2, FOR 7 DAYS EVERY 14 DAYS
     Route: 048

REACTIONS (2)
  - Insulin-requiring type 2 diabetes mellitus [Unknown]
  - Off label use [Unknown]
